FAERS Safety Report 7602585-0 (Version None)
Quarter: 2011Q3

REPORT INFORMATION
  Report Type: 
  Country: None (occurrence: None)
  Receive Date: 20110701
  Receipt Date: 20110627
  Transmission Date: 20111222
  Serious: Yes (Other)
  Sender: FDA-Public Use
  Company Number: A0933216A

PATIENT
  Age: 75 Year
  Sex: Female

DRUGS (2)
  1. OMEPRAZOLE [Concomitant]
  2. CALCIUM CARBONATE [Suspect]
     Indication: DYSPEPSIA

REACTIONS (2)
  - BLOOD PRESSURE INCREASED [None]
  - DRUG DEPENDENCE [None]
